FAERS Safety Report 4426075-1 (Version None)
Quarter: 2004Q3

REPORT INFORMATION
  Report Type: 
  Country: None (occurrence: None)
  Receive Date: 20040811
  Receipt Date: 20040726
  Transmission Date: 20050211
  Serious: Yes (Hospitalization)
  Sender: FDA-Public Use
  Company Number: 2004JP001465

PATIENT
  Age: 43 Year
  Sex: Male

DRUGS (1)
  1. PROGRAF [Suspect]
     Indication: BONE MARROW TRANSPLANT
     Dosage: 0.02MG/KG INTRAVENOUS
     Route: 042
     Dates: start: 20020101, end: 20020101

REACTIONS (10)
  - AMNESIA [None]
  - CYTOMEGALOVIRUS ANTIGEN POSITIVE [None]
  - DISEASE RECURRENCE [None]
  - DISORIENTATION [None]
  - ENCEPHALITIS HERPES [None]
  - GENERAL PHYSICAL HEALTH DETERIORATION [None]
  - HUMAN HERPESVIRUS 6 INFECTION [None]
  - PNEUMONITIS [None]
  - TREMOR [None]
  - VIRAL INFECTION [None]
